FAERS Safety Report 4495971-1 (Version None)
Quarter: 2004Q4

REPORT INFORMATION
  Report Type: 
  Country: None (occurrence: None)
  Receive Date: 20040927
  Receipt Date: 20040817
  Transmission Date: 20050328
  Serious: No
  Sender: FDA-Public Use
  Company Number: USA040567718

PATIENT
  Age: 10 Year
  Sex: Male
  Weight: 38 kg

DRUGS (3)
  1. STRATTERA [Suspect]
     Indication: ATTENTION DEFICIT/HYPERACTIVITY DISORDER
     Dosage: 40 MG DAY
     Dates: start: 20040401
  2. ZYRTEC(CETIRIZINE HYDROCLORIDE) [Concomitant]
  3. SINGULAIR (MONTELUKAST) [Concomitant]

REACTIONS (1)
  - DYSURIA [None]
